FAERS Safety Report 6522411-0 (Version None)
Quarter: 2009Q4

REPORT INFORMATION
  Report Type: 
  Country: None (occurrence: None)
  Receive Date: 20091229
  Receipt Date: 20091229
  Transmission Date: 20100525
  Serious: No
  Sender: FDA-Public Use
  Company Number: None

PATIENT
  Age: 46 Year
  Sex: Female
  Weight: 89.3586 kg

DRUGS (2)
  1. TRANSDERM SCOPOLAMINE PATCH 1.5MG NOVARTIS [Suspect]
     Indication: MOTION SICKNESS
     Dosage: 1.0MG 3 DAYS TRANSDERMAL
     Route: 062
     Dates: start: 20091018, end: 20091025
  2. TRANSDERM SCOPOLAMINE PATCH 1.5MG NOVARTIS [Suspect]
     Indication: MOTION SICKNESS
     Dosage: 1.0MG 3 DAYS TRANSDERMAL
     Route: 062
     Dates: start: 20091025, end: 20091025

REACTIONS (7)
  - ANXIETY [None]
  - EAR INFECTION [None]
  - HEADACHE [None]
  - NAUSEA [None]
  - PRODUCT LABEL ISSUE [None]
  - PRODUCT PACKAGING ISSUE [None]
  - VERTIGO [None]
